FAERS Safety Report 17741637 (Version 1)
Quarter: 2020Q2

REPORT INFORMATION
  Report Type: Spontaneous
  Country: FR (occurrence: FR)
  Receive Date: 20200504
  Receipt Date: 20200504
  Transmission Date: 20200714
  Serious: Yes (Death)
  Sender: FDA-Public Use
  Company Number: FR-SHIRE-FR202015010

PATIENT

DRUGS (12)
  1. METHOTREXATE. [Suspect]
     Active Substance: METHOTREXATE
     Indication: PANCREATITIS
     Dosage: 1ST EVENT
     Route: 065
  2. HUMAN NORMAL IMMUNOGLOBULIN [Suspect]
     Active Substance: HUMAN IMMUNOGLOBULIN G
     Indication: PANCREATITIS
     Dosage: 1ST ABDOMINAL EVENT
     Route: 042
  3. MYCOPHENOLIC ACID. [Suspect]
     Active Substance: MYCOPHENOLIC ACID
     Indication: COLITIS
     Route: 065
  4. METHOTREXATE. [Suspect]
     Active Substance: METHOTREXATE
     Indication: PANCREATIC NECROSIS
  5. HUMAN NORMAL IMMUNOGLOBULIN [Suspect]
     Active Substance: HUMAN IMMUNOGLOBULIN G
     Indication: HEPATITIS
     Dosage: 3RD ABDOMINAL EVENT
     Route: 042
  6. RITUXIMAB. [Suspect]
     Active Substance: RITUXIMAB
     Indication: DERMATOMYOSITIS
  7. METHOTREXATE. [Suspect]
     Active Substance: METHOTREXATE
     Indication: DERMATOMYOSITIS
  8. HUMAN NORMAL IMMUNOGLOBULIN [Suspect]
     Active Substance: HUMAN IMMUNOGLOBULIN G
     Indication: PANCREATIC NECROSIS
     Dosage: 2ND ABDOMINAL EVENT
     Route: 042
  9. HUMAN NORMAL IMMUNOGLOBULIN [Suspect]
     Active Substance: HUMAN IMMUNOGLOBULIN G
     Indication: COLITIS
  10. RITUXIMAB. [Suspect]
     Active Substance: RITUXIMAB
     Indication: PANCREATIC NECROSIS
     Dosage: 1ST EVENT
     Route: 065
  11. RITUXIMAB. [Suspect]
     Active Substance: RITUXIMAB
     Indication: PANCREATITIS
  12. MYCOPHENOLIC ACID. [Suspect]
     Active Substance: MYCOPHENOLIC ACID
     Indication: DERMATOMYOSITIS

REACTIONS (3)
  - Product use in unapproved indication [Fatal]
  - Off label use [Unknown]
  - Drug ineffective for unapproved indication [Unknown]
